FAERS Safety Report 7496915-0 (Version None)
Quarter: 2011Q2

REPORT INFORMATION
  Report Type: 
  Country: None (occurrence: None)
  Receive Date: 20110523
  Receipt Date: 20110516
  Transmission Date: 20111010
  Serious: Yes (Hospitalization)
  Sender: FDA-Public Use
  Company Number: JP-PFIZER INC-2011080385

PATIENT
  Age: 61 Year
  Sex: Male

DRUGS (3)
  1. ESTRACYT [Suspect]
     Indication: PROSTATE CANCER
     Dosage: 626.8 MG/DAY
     Route: 048
     Dates: start: 20100827, end: 20100913
  2. TAXOTERE [Concomitant]
     Dosage: UNK
     Route: 041
  3. ESTRACYT [Suspect]
     Dosage: 313.4 MG/DAY
     Route: 048
     Dates: start: 20100914

REACTIONS (3)
  - DYSGEUSIA [None]
  - OBESITY [None]
  - MALAISE [None]
